FAERS Safety Report 6235551-0 (Version None)
Quarter: 2009Q2

REPORT INFORMATION
  Report Type: 
  Country: None (occurrence: None)
  Receive Date: 20090618
  Receipt Date: 20081231
  Transmission Date: 20091009
  Serious: No
  Sender: FDA-Public Use
  Company Number: US-ASTRAZENECA-2008UW28998

PATIENT
  Age: 91 Year
  Sex: Female

DRUGS (1)
  1. RHINOCORT [Suspect]
     Indication: SINUS OPERATION
     Route: 045
     Dates: start: 20081217

REACTIONS (1)
  - DYSPNOEA [None]
